FAERS Safety Report 5052194-5 (Version None)
Quarter: 2006Q3

REPORT INFORMATION
  Report Type: 
  Country: None (occurrence: None)
  Receive Date: 20060714
  Receipt Date: 20060714
  Transmission Date: 20061208
  Serious: Yes (Hospitalization, Disabling, Other)
  Sender: FDA-Public Use
  Company Number: None

PATIENT
  Age: 35 Year
  Sex: Female
  Weight: 72.5755 kg

DRUGS (9)
  1. TOPAMAX [Suspect]
     Indication: HEADACHE
     Dosage: SEE IMAGE
     Route: 048
     Dates: start: 20060618, end: 20060627
  2. TOPAMAX [Suspect]
     Indication: MIGRAINE
     Dosage: SEE IMAGE
     Route: 048
     Dates: start: 20060618, end: 20060627
  3. TRAZODONE HCL [Concomitant]
  4. LIPITOR [Concomitant]
  5. SYNTHROID [Concomitant]
  6. ACETAMINOPHEN [Concomitant]
  7. MOTRIN [Concomitant]
  8. ULTRAM [Concomitant]
  9. FIORICET [Concomitant]

REACTIONS (5)
  - BLINDNESS TRANSIENT [None]
  - HYPERMETROPIA [None]
  - LENS DISORDER [None]
  - VISION BLURRED [None]
  - VISUAL ACUITY REDUCED [None]
